FAERS Safety Report 24868558 (Version 2)
Quarter: 2025Q1

REPORT INFORMATION
  Report Type: Spontaneous
  Country: CN (occurrence: CN)
  Receive Date: 20250121
  Receipt Date: 20250320
  Transmission Date: 20250408
  Serious: Yes (Other)
  Sender: MERCK KGAA
  Company Number: CN-Merck Healthcare KGaA-2025001939

PATIENT
  Sex: Female

DRUGS (2)
  1. EUTHYROX [Suspect]
     Active Substance: LEVOTHYROXINE SODIUM
     Indication: Product used for unknown indication
     Route: 048
  2. EUTHYROX [Suspect]
     Active Substance: LEVOTHYROXINE SODIUM
     Route: 048

REACTIONS (4)
  - Thyroid operation [Unknown]
  - Anti-thyroid antibody increased [Unknown]
  - Anxiety [Unknown]
  - Therapeutic product effect decreased [Unknown]
